FAERS Safety Report 6917231-9 (Version None)
Quarter: 2010Q3

REPORT INFORMATION
  Report Type: 
  Country: None (occurrence: None)
  Receive Date: 20100810
  Receipt Date: 20090117
  Transmission Date: 20110219
  Serious: Yes (Other)
  Sender: FDA-Public Use
  Company Number: US-PFIZER INC-2008156220

PATIENT
  Sex: Female
  Weight: 54.422 kg

DRUGS (1)
  1. CELEBREX [Suspect]
     Indication: HEADACHE
     Dosage: 200 MG, ONCE
     Route: 048
     Dates: start: 20081105, end: 20081105

REACTIONS (3)
  - DIARRHOEA [None]
  - DYSPNOEA [None]
  - PRURITUS [None]
